FAERS Safety Report 8772818 (Version 2)
Quarter: 2012Q4

REPORT INFORMATION
  Report Type: Report from Study
  Country: DK (occurrence: DK)
  Receive Date: 20120907
  Receipt Date: 20121120
  Transmission Date: 20130627
  Serious: Yes (Death)
  Sender: FDA-Public Use
  Company Number: DK-PFIZER INC-2012212365

PATIENT
  Age: 64 Year
  Sex: Male

DRUGS (1)
  1. CELECOXIB [Suspect]
     Indication: OSTEOARTHRITIS
     Dosage: UNK
     Route: 048
     Dates: start: 2009, end: 20111118

REACTIONS (1)
  - Death [Fatal]
